FAERS Safety Report 9402369 (Version 1)
Quarter: 2013Q3

REPORT INFORMATION
  Report Type: Spontaneous
  Country: US (occurrence: None)
  Receive Date: 20130712
  Receipt Date: 20130712
  Transmission Date: 20140515
  Serious: Yes (Other)
  Sender: FDA-Public Use
  Company Number: None

PATIENT
  Age: 23 Year
  Sex: Female
  Weight: 65.77 kg

DRUGS (2)
  1. CYMBALTA [Suspect]
     Indication: DEPRESSION
     Route: 048
     Dates: start: 20130401, end: 20130706
  2. CYMBALTA [Suspect]
     Indication: ANXIETY
     Route: 048
     Dates: start: 20130401, end: 20130706

REACTIONS (11)
  - Drug withdrawal syndrome [None]
  - Mood swings [None]
  - Irritability [None]
  - Crying [None]
  - Anger [None]
  - Feeling abnormal [None]
  - Headache [None]
  - Nausea [None]
  - Diarrhoea [None]
  - Paraesthesia [None]
  - Tremor [None]
